FAERS Safety Report 4514302-1 (Version None)
Quarter: 2004Q4

REPORT INFORMATION
  Report Type: 
  Country: None (occurrence: None)
  Receive Date: 20041124
  Receipt Date: 20041104
  Transmission Date: 20050328
  Serious: Yes (Life-Threatening)
  Sender: FDA-Public Use
  Company Number: JP_041004916

PATIENT
  Age: 68 Year
  Sex: Female
  Weight: 45 kg

DRUGS (8)
  1. VANCOMYCIN [Suspect]
     Indication: SEPSIS
     Dosage: 1000 MG/1 DAY
     Dates: start: 20041008, end: 20041018
  2. CARBENIN [Concomitant]
  3. MINOCYCLINE HCL [Concomitant]
  4. QUINAPRIL HCL [Concomitant]
  5. DOXAZOSIN MESYLATE [Concomitant]
  6. AMLODIPINE BESYLATE [Concomitant]
  7. ALMODET (METHYLDOPA) [Concomitant]
  8. SIGMART (NICORANDIL) [Concomitant]

REACTIONS (4)
  - ANGINA PECTORIS [None]
  - BACTERIAL SEPSIS [None]
  - LYMPHOCYTE STIMULATION TEST POSITIVE [None]
  - PANCYTOPENIA [None]
